FAERS Safety Report 9458170 (Version 1)
Quarter: 2013Q3

REPORT INFORMATION
  Report Type: Spontaneous
  Country: DE (occurrence: None)
  Receive Date: 20130812
  Receipt Date: 20130812
  Transmission Date: 20140515
  Serious: Yes (Hospitalization)
  Sender: FDA-Public Use
  Company Number: 1835203

PATIENT
  Sex: 0

DRUGS (5)
  1. CARBOPLATIN [Suspect]
     Indication: NON-SMALL CELL LUNG CANCER STAGE III
     Dosage: AUC 2 (CYCLE 1) (UNKNOWN)
  2. CARBOPLATIN [Suspect]
     Indication: NON-SMALL CELL LUNG CANCER STAGE III
     Dosage: AUC 2 (CYCLE 1) (UNKNOWN)
  3. PACLITAXEL [Suspect]
     Indication: NON-SMALL CELL LUNG CANCER STAGE III
  4. PACLITAXEL [Suspect]
     Indication: NON-SMALL CELL LUNG CANCER STAGE III
  5. OTHER THERAPEUTIC RADIOPHARMACEUTICALS [Concomitant]

REACTIONS (6)
  - Leukopenia [None]
  - Stomatitis [None]
  - Neutropenia [None]
  - Infection [None]
  - Mucosal inflammation [None]
  - Toxicity to various agents [None]
